FAERS Safety Report 18659447 (Version 1)
Quarter: 2020Q4

REPORT INFORMATION
  Report Type: Other
  Country: US (occurrence: US)
  Receive Date: 20201224
  Receipt Date: 20201224
  Transmission Date: 20210114
  Serious: Yes (Hospitalization, Other)
  Sender: FDA-Public Use
  Company Number: US-ROCHE-2660063

PATIENT
  Sex: Male
  Weight: 63.56 kg

DRUGS (8)
  1. ZYRTEC (UNITED STATES) [Concomitant]
     Indication: HYPERSENSITIVITY
  2. ARMODAFINIL. [Concomitant]
     Active Substance: ARMODAFINIL
     Route: 048
  3. AMPYRA [Concomitant]
     Active Substance: DALFAMPRIDINE
     Route: 048
  4. OCREVUS [Suspect]
     Active Substance: OCRELIZUMAB
     Indication: RELAPSING-REMITTING MULTIPLE SCLEROSIS
     Route: 065
  5. BACLOFEN. [Concomitant]
     Active Substance: BACLOFEN
     Indication: MUSCLE RELAXANT THERAPY
     Route: 048
  6. CLARITIN [Concomitant]
     Active Substance: LORATADINE
  7. OMEGA 3 [Concomitant]
     Active Substance: OMEGA-3 FATTY ACIDS
     Dosage: WITH FOOD
     Route: 048
  8. ALLEGRA [Concomitant]
     Active Substance: FEXOFENADINE HYDROCHLORIDE
     Indication: HYPERSENSITIVITY

REACTIONS (4)
  - Balance disorder [Unknown]
  - Magnetic resonance imaging spinal abnormal [Unknown]
  - Multiple sclerosis relapse [Unknown]
  - Infection [Unknown]
